FAERS Safety Report 13020405 (Version 1)
Quarter: 2016Q4

REPORT INFORMATION
  Report Type: Spontaneous
  Country: US (occurrence: US)
  Receive Date: 20161212
  Receipt Date: 20161212
  Transmission Date: 20170207
  Serious: No
  Sender: FDA-Public Use
  Company Number: US-TEIKOKU PHARMA USA-TPU2016-00827

PATIENT
  Sex: Female
  Weight: 81.72 kg

DRUGS (1)
  1. LIDOCAINE PATCH [Suspect]
     Active Substance: LIDOCAINE
     Indication: NEURALGIA
     Route: 061
     Dates: start: 201611

REACTIONS (1)
  - Drug ineffective for unapproved indication [Not Recovered/Not Resolved]
